FAERS Safety Report 20757061 (Version 1)
Quarter: 2022Q2

REPORT INFORMATION
  Report Type: Spontaneous
  Country: US (occurrence: US)
  Receive Date: 20220427
  Receipt Date: 20220427
  Transmission Date: 20220720
  Serious: No
  Sender: FDA-Public Use
  Company Number: US-ANIPHARMA-2022-US-008181

PATIENT
  Age: 82 Year
  Sex: Female
  Weight: 76.66 kg

DRUGS (4)
  1. PROPRANOLOL HYDROCHLORIDE [Suspect]
     Active Substance: PROPRANOLOL HYDROCHLORIDE
     Indication: Tachycardia
     Route: 065
  2. HYDROCHLOROTHIAZIDE [Concomitant]
     Active Substance: HYDROCHLOROTHIAZIDE
  3. PEPCID [Concomitant]
     Active Substance: FAMOTIDINE
     Dosage: BEFORE MEALS AS NEEDED
  4. TYLENOL [Concomitant]
     Active Substance: ACETAMINOPHEN
     Dosage: USED AS NEEDED

REACTIONS (3)
  - Drug ineffective for unapproved indication [Recovered/Resolved]
  - Tachycardia [Recovered/Resolved]
  - Off label use [Recovered/Resolved]
